FAERS Safety Report 7084192-4 (Version None)
Quarter: 2010Q4

REPORT INFORMATION
  Report Type: 
  Country: None (occurrence: None)
  Receive Date: 20101104
  Receipt Date: 20101026
  Transmission Date: 20110411
  Serious: Yes (Hospitalization)
  Sender: FDA-Public Use
  Company Number: JP-GILEAD-2010-0033027

PATIENT
  Sex: Male

DRUGS (7)
  1. VIREAD [Suspect]
     Indication: HIV INFECTION
     Route: 048
     Dates: start: 20040712, end: 20090707
  2. NORVIR [Suspect]
     Indication: HIV INFECTION
     Route: 048
     Dates: start: 20040712
  3. REYATAZ [Suspect]
     Indication: HIV INFECTION
     Route: 048
     Dates: start: 20040117, end: 20040711
  4. REYATAZ [Suspect]
     Route: 048
     Dates: start: 20040712, end: 20090707
  5. EPIVIR [Suspect]
     Indication: HIV INFECTION
     Route: 048
     Dates: start: 19980814, end: 20040116
  6. EPIVIR [Suspect]
     Route: 048
     Dates: start: 20040117, end: 20090707
  7. RECOMBINATE [Concomitant]
     Indication: HIV INFECTION
     Dates: start: 20060401, end: 20070720

REACTIONS (2)
  - GASTRIC ULCER [None]
  - REFLUX OESOPHAGITIS [None]
